FAERS Safety Report 8092589-9 (Version None)
Quarter: 2012Q1

REPORT INFORMATION
  Report Type: 
  Country: None (occurrence: None)
  Receive Date: 20120128
  Receipt Date: 20110722
  Transmission Date: 20120608
  Serious: No
  Sender: FDA-Public Use
  Company Number: US-ABBOTT-11P-163-0841395-00

PATIENT
  Weight: 57.204 kg

DRUGS (4)
  1. MELOXICAM [Concomitant]
     Indication: SARCOIDOSIS
  2. METHOTREXATE [Concomitant]
     Indication: SARCOIDOSIS
     Dosage: 4 TABLETS: 1 IN 1 WEEKS
  3. HUMIRA [Suspect]
     Indication: SARCOIDOSIS
     Dates: start: 20101001
  4. FOLIC ACID [Concomitant]
     Indication: VITAMIN SUPPLEMENTATION

REACTIONS (11)
  - FATIGUE [None]
  - PAIN IN EXTREMITY [None]
  - WEIGHT INCREASED [None]
  - SARCOIDOSIS [None]
  - ARTHRALGIA [None]
  - MALAISE [None]
  - SOMNOLENCE [None]
  - RED BLOOD CELL COUNT DECREASED [None]
  - PAIN [None]
  - NEPHROLITHIASIS [None]
  - ASTHENIA [None]
